FAERS Safety Report 15798241 (Version 1)
Quarter: 2019Q1

REPORT INFORMATION
  Report Type: Spontaneous
  Country: GB (occurrence: GB)
  Receive Date: 20190108
  Receipt Date: 20190108
  Transmission Date: 20190417
  Serious: Yes (Life-Threatening, Hospitalization, Other)
  Sender: FDA-Public Use
  Company Number: GB-PFIZER INC-2019006090

PATIENT
  Age: 69 Year
  Sex: Female
  Weight: 69.85 kg

DRUGS (1)
  1. CLINDAMYCIN HCL [Suspect]
     Active Substance: CLINDAMYCIN HYDROCHLORIDE
     Indication: LOCALISED INFECTION
     Dosage: 12 OFF 150 MG PER DAY FOR A MONTH PRESCRIBED
     Route: 048
     Dates: start: 20181116, end: 20181130

REACTIONS (2)
  - Renal failure [Recovered/Resolved]
  - Loss of consciousness [Unknown]

NARRATIVE: CASE EVENT DATE: 20181130
